FAERS Safety Report 8049027-1 (Version None)
Quarter: 2012Q1

REPORT INFORMATION
  Report Type: 
  Country: None (occurrence: None)
  Receive Date: 20120117
  Receipt Date: 20120106
  Transmission Date: 20120608
  Serious: Yes (Other)
  Sender: FDA-Public Use
  Company Number: PHHY2012NL003359

PATIENT
  Age: 26 Year
  Sex: Female
  Weight: 50 kg

DRUGS (2)
  1. CLOMIPRAMINE HCL [Suspect]
     Indication: PANIC DISORDER
     Dosage: 50 MG, UNK
  2. CLOMIPRAMINE HCL [Suspect]
     Dosage: 50 MG, UNK

REACTIONS (3)
  - PRE-ECLAMPSIA [None]
  - PREMATURE DELIVERY [None]
  - MATERNAL EXPOSURE DURING PREGNANCY [None]
